FAERS Safety Report 8265223-2 (Version None)
Quarter: 2012Q2

REPORT INFORMATION
  Report Type: 
  Country: None (occurrence: None)
  Receive Date: 20120406
  Receipt Date: 20120327
  Transmission Date: 20120825
  Serious: Yes (Other)
  Sender: FDA-Public Use
  Company Number: GB-AMGEN-GBRSP2012020791

PATIENT
  Age: 11 Year
  Sex: Female

DRUGS (1)
  1. ETANERCEPT [Suspect]
     Indication: JUVENILE ARTHRITIS
     Dosage: 12.5 MG, 2X/WEEK
     Route: 058
     Dates: start: 20110801, end: 20120313

REACTIONS (4)
  - PRURITUS [None]
  - ERYTHEMA [None]
  - SKIN REACTION [None]
  - DERMATITIS [None]
